FAERS Safety Report 6009988-9 (Version None)
Quarter: 2008Q4

REPORT INFORMATION
  Report Type: 
  Country: None (occurrence: None)
  Receive Date: 20081216
  Receipt Date: 20081112
  Transmission Date: 20090506
  Serious: Yes (Life-Threatening)
  Sender: FDA-Public Use
  Company Number: 1-16944301

PATIENT
  Age: 50 Year
  Sex: Female

DRUGS (20)
  1. FENTANYL [Suspect]
     Dosage: 100 UG, PR,  INTRAVENOUS
     Route: 042
  2. SUXAMETHONIUM [Suspect]
     Dosage: 100 MG, PR, INTRAVENOUS
     Route: 042
  3. PROPOFOL [Suspect]
     Dosage: 200 MG PR, INTRAVENOUS
     Route: 042
  4. ATRACURIUM BESYLATE [Suspect]
     Dosage: 25 ?G, INTRAVENOUS
     Route: 042
  5. DIAZEPAM [Concomitant]
  6. OXYCODONE HCL [Concomitant]
  7. TRAZODONE HCL [Concomitant]
  8. TEMAZAPAM 40 MG [Concomitant]
  9. LANSOPRAZOLE 15 MG [Concomitant]
  10. BETAHISTINE 16 MG [Concomitant]
  11. PARACETAMOL (ACETAMINOPHEN) 2 GRAMS [Concomitant]
  12. IPRATROPIUM BROMIDE IINHALER [Concomitant]
  13. ALVERINE CITRATE 60 MG [Concomitant]
  14. SOLIFENACIN 10 MG [Concomitant]
  15. SERTRALINE [Concomitant]
  16. DICLOFENAC 50 MG [Concomitant]
  17. CLOPIDOGREL [Concomitant]
  18. ATROVENT (IPRATROPIUM ORAL INHALATION) [Concomitant]
  19. EICOSAPENTAENOIC ACID (HYDROGENATED FISH OIL) [Concomitant]
  20. DOCOSAHEXAENOIC ACID (OMEGA 3 FATTY ACID) [Concomitant]

REACTIONS (2)
  - ANAPHYLACTIC REACTION [None]
  - HYPOTENSION [None]
